FAERS Safety Report 26162332 (Version 1)
Quarter: 2025Q4

REPORT INFORMATION
  Report Type: Spontaneous
  Country: US (occurrence: US)
  Receive Date: 20251216
  Receipt Date: 20251216
  Transmission Date: 20260117
  Serious: Yes (Other)
  Sender: MERCK SHARP & DOHME LLC
  Company Number: US-009507513-2360384

PATIENT
  Age: 59 Year
  Sex: Male

DRUGS (1)
  1. DAPTOMYCIN [Suspect]
     Active Substance: DAPTOMYCIN
     Indication: Osteomyelitis chronic
     Route: 042

REACTIONS (2)
  - Eosinophilic pneumonia acute [Recovering/Resolving]
  - Product use in unapproved indication [Unknown]
